FAERS Safety Report 5517440-X (Version None)
Quarter: 2007Q4

REPORT INFORMATION
  Report Type: 
  Country: None (occurrence: None)
  Receive Date: 20071114
  Receipt Date: 20071105
  Transmission Date: 20080405
  Serious: Yes (Disabling)
  Sender: FDA-Public Use
  Company Number: IS-ASTRAZENECA-2007SE05970

PATIENT
  Age: 36 Year
  Sex: Female
  Weight: 104 kg

DRUGS (4)
  1. SEROQUEL [Suspect]
     Indication: DEPRESSION
     Dosage: 100 MG+200 MG
     Route: 048
     Dates: start: 20070801, end: 20071112
  2. NEXIUM [Concomitant]
     Route: 048
  3. FURIX [Concomitant]
     Route: 048
  4. LARGACTIL [Concomitant]
     Route: 048
     Dates: start: 20070801

REACTIONS (4)
  - LOOSE TOOTH [None]
  - MUSCLE SPASMS [None]
  - TREMOR [None]
  - WEIGHT INCREASED [None]
